FAERS Safety Report 19197564 (Version 2)
Quarter: 2023Q4

REPORT INFORMATION
  Report Type: Spontaneous
  Country: US (occurrence: US)
  Receive Date: 20210430
  Receipt Date: 20231026
  Transmission Date: 20240109
  Serious: Yes (Life-Threatening, Hospitalization, Other)
  Sender: FDA-Public Use
  Company Number: US-APOTEX-2014AP006359

PATIENT
  Age: 40 Year
  Sex: Male

DRUGS (13)
  1. HYDROMORPHONE [Suspect]
     Active Substance: HYDROMORPHONE
     Indication: Procedural pain
     Dosage: UNK
     Route: 065
  2. METHYLPREDNISOLONE [Suspect]
     Active Substance: METHYLPREDNISOLONE
     Indication: Immunosuppressant drug therapy
     Dosage: UNK
     Route: 065
  3. NIFEDIPINE [Suspect]
     Active Substance: NIFEDIPINE
     Indication: Hypertensive crisis
     Dosage: 120 MG, DAILY
     Route: 048
  4. NIFEDIPINE [Suspect]
     Active Substance: NIFEDIPINE
     Dosage: 30 MG, DAILY
     Route: 048
  5. FENTANYL [Suspect]
     Active Substance: FENTANYL\FENTANYL CITRATE
     Indication: Procedural pain
     Dosage: UNK
     Route: 065
  6. LABETALOL [Suspect]
     Active Substance: LABETALOL\LABETALOL HYDROCHLORIDE
     Indication: Hypertensive crisis
     Dosage: UNK
     Route: 040
  7. LABETALOL [Suspect]
     Active Substance: LABETALOL\LABETALOL HYDROCHLORIDE
     Dosage: 600 MILLIGRAM, 3 TIMES A DAY
     Route: 048
  8. TACROLIMUS [Suspect]
     Active Substance: TACROLIMUS
     Indication: Immunosuppressant drug therapy
     Dosage: UNK
     Route: 065
  9. HYDRALAZINE [Concomitant]
     Active Substance: HYDRALAZINE HYDROCHLORIDE
     Indication: Hypertensive crisis
     Dosage: UNK
     Route: 040
  10. ESMOLOL [Concomitant]
     Active Substance: ESMOLOL HYDROCHLORIDE
     Indication: Hypertensive crisis
     Dosage: 100 MICROGRAM/KILOGRAM/MIN
     Route: 042
  11. NICARDIPINE [Concomitant]
     Active Substance: NICARDIPINE
     Indication: Hypertensive crisis
     Dosage: 7 MILLIGRAM/HOUR
     Route: 050
  12. CLONIDINE [Concomitant]
     Active Substance: CLONIDINE
     Indication: Hypertensive crisis
     Dosage: 0.2 MILLIGRAM, ONCE A DAY
     Route: 062
  13. CLONIDINE [Concomitant]
     Active Substance: CLONIDINE
     Dosage: 0.3 MILLIGRAM, ONCE A DAY
     Route: 062

REACTIONS (11)
  - Gastric ileus [Unknown]
  - Hypertensive crisis [Recovered/Resolved]
  - Bradycardia [Recovered/Resolved]
  - Unresponsive to stimuli [Recovered/Resolved]
  - Chest pain [Unknown]
  - Hyperhidrosis [Unknown]
  - Hypertension [Recovered/Resolved]
  - Dyspnoea [Unknown]
  - Hypotension [Recovering/Resolving]
  - Overdose [Recovering/Resolving]
  - Drug ineffective [Unknown]
